FAERS Safety Report 19823626 (Version 4)
Quarter: 2021Q4

REPORT INFORMATION
  Report Type: Report from Study
  Country: US (occurrence: US)
  Receive Date: 20210913
  Receipt Date: 20211101
  Transmission Date: 20220303
  Serious: Yes (Hospitalization, Other)
  Sender: FDA-Public Use
  Company Number: NVSC2021US124990

PATIENT
  Age: 66 Year
  Sex: Female
  Weight: 72.9 kg

DRUGS (11)
  1. COSENTYX [Suspect]
     Active Substance: SECUKINUMAB
     Indication: Lichen planus
     Dosage: 300 MG, Q4W
     Route: 058
     Dates: start: 20210210, end: 20210505
  2. CITALOPRAM [Concomitant]
     Active Substance: CITALOPRAM HYDROBROMIDE
     Indication: Depression
     Dosage: UNK
     Route: 065
     Dates: start: 20210418
  3. BETAMETHASONE VALERATE [Concomitant]
     Active Substance: BETAMETHASONE VALERATE
     Indication: Lichen planus
     Dosage: UNK
     Route: 065
     Dates: start: 20210125
  4. CALCIUM [Concomitant]
     Active Substance: CALCIUM
     Indication: General physical condition
     Dosage: UNK
     Route: 065
     Dates: start: 1995
  5. ALAVERT ALLERGY [Concomitant]
     Active Substance: LORATADINE
     Indication: Seasonal allergy
     Dosage: UNK
     Route: 065
     Dates: start: 2009
  6. FLUTICASONE PROPIONATE [Concomitant]
     Active Substance: FLUTICASONE PROPIONATE
     Indication: Seasonal allergy
     Dosage: UNK
     Route: 065
     Dates: start: 20200120
  7. DICLOFENAC [Concomitant]
     Active Substance: DICLOFENAC
     Indication: Osteoarthritis
     Dosage: UNK
     Route: 065
     Dates: start: 202003
  8. ADVIL [Concomitant]
     Active Substance: IBUPROFEN
     Indication: Lichen planus
     Dosage: UNK
     Route: 065
     Dates: start: 20201015
  9. TYLENOL [Concomitant]
     Active Substance: ACETAMINOPHEN
     Indication: Lichen planus
     Dosage: UNK
     Route: 065
     Dates: start: 20201015
  10. CYCLOBENZAPRINE [Concomitant]
     Active Substance: CYCLOBENZAPRINE
     Indication: Intervertebral disc protrusion
     Dosage: UNK
     Route: 065
     Dates: start: 2009
  11. NORCO [Concomitant]
     Active Substance: ACETAMINOPHEN\HYDROCODONE BITARTRATE
     Indication: Intervertebral disc protrusion
     Dosage: UNK
     Route: 065
     Dates: start: 2009

REACTIONS (1)
  - Colitis ulcerative [Not Recovered/Not Resolved]

NARRATIVE: CASE EVENT DATE: 20210512
